FAERS Safety Report 22280680 (Version 1)
Quarter: 2023Q2

REPORT INFORMATION
  Report Type: Spontaneous
  Country: US (occurrence: US)
  Receive Date: 20230503
  Receipt Date: 20230503
  Transmission Date: 20230722
  Serious: Yes (Hospitalization, Other)
  Sender: FDA-Public Use
  Company Number: US-ANIPHARMA-2023-US-011084

PATIENT
  Age: 41 Year
  Sex: Male
  Weight: 130.6 kg

DRUGS (30)
  1. REGLAN [Suspect]
     Active Substance: METOCLOPRAMIDE HYDROCHLORIDE
     Indication: Product used for unknown indication
     Dosage: 10 MG TABLET TAKEN FOUR TIMES A DAY
     Route: 048
     Dates: start: 20200422, end: 20201012
  2. REMICADE [Suspect]
     Active Substance: INFLIXIMAB
     Route: 042
     Dates: start: 20200505
  3. LEVETIRACETAM [Suspect]
     Active Substance: LEVETIRACETAM
     Dosage: 1000 MG BID
     Route: 048
     Dates: end: 20201012
  4. CYCLOBENZAPRINE HYDROCHLORIDE [Suspect]
     Active Substance: CYCLOBENZAPRINE HYDROCHLORIDE
     Route: 065
  5. PANTOPRAZOLE SODIUM ANHYDROUS [Suspect]
     Active Substance: PANTOPRAZOLE SODIUM ANHYDROUS
     Route: 065
  6. ITRACONAZOLE [Suspect]
     Active Substance: ITRACONAZOLE
     Dosage: 200 MG QD(DAILY)
     Route: 048
     Dates: start: 20200611, end: 20200618
  7. TOCOPHEROL [Suspect]
     Active Substance: TOCOPHEROL
     Route: 065
  8. CYANOCOBALAMIN [Suspect]
     Active Substance: CYANOCOBALAMIN
     Dosage: 500 UG QD
     Route: 048
     Dates: start: 20221118
  9. ASCORBIC ACID [Suspect]
     Active Substance: ASCORBIC ACID
     Dosage: 500 MG QD
     Route: 048
  10. PEPTO-BISMOL [Suspect]
     Active Substance: BISMUTH SUBSALICYLATE
     Dosage: ABDOMINAL PAIN
     Route: 065
  11. INSULIN NOS [Concomitant]
     Active Substance: INSULIN NOS
     Route: 065
  12. GOLD BOND ORIGINAL STRENGTH POWDER [Suspect]
     Active Substance: MENTHOL\ZINC OXIDE
     Route: 065
  13. lmuran [Concomitant]
     Route: 065
  14. MERCAPTOPURINE [Suspect]
     Active Substance: MERCAPTOPURINE
     Route: 065
  15. FERROUS SULFATE [Concomitant]
     Active Substance: FERROUS SULFATE
     Route: 065
  16. XYLOCAINE [Concomitant]
     Active Substance: LIDOCAINE HYDROCHLORIDE
     Route: 065
  17. DESYREL [Concomitant]
     Active Substance: TRAZODONE HYDROCHLORIDE
     Route: 065
  18. FOLIC ACID [Concomitant]
     Active Substance: FOLIC ACID
     Route: 065
  19. PENTASA [Concomitant]
     Active Substance: MESALAMINE
     Route: 065
  20. DELZICOL [Concomitant]
     Active Substance: MESALAMINE
     Route: 065
  21. VERSED [Concomitant]
     Active Substance: MIDAZOLAM HYDROCHLORIDE
     Route: 065
  22. SUBLIMAZE [Concomitant]
     Active Substance: FENTANYL CITRATE
     Route: 065
  23. PREDNISONE [Suspect]
     Active Substance: PREDNISONE
     Dosage: 20 MG BID(TWICE DAILY)
     Route: 048
     Dates: start: 20200806
  24. AVAPRO [Concomitant]
     Active Substance: IRBESARTAN
     Route: 065
  25. ERYTHROMYCIN [Suspect]
     Active Substance: ERYTHROMYCIN
     Route: 065
  26. VITAMINS [Suspect]
     Active Substance: VITAMINS
     Route: 065
  27. CHOLECALCIFEROL [Suspect]
     Active Substance: CHOLECALCIFEROL
     Dosage: 1000 U QD
     Route: 048
     Dates: start: 20221118
  28. HERBAL NOS [Suspect]
     Active Substance: HERBALS
     Route: 065
  29. VALSARTAN [Suspect]
     Active Substance: VALSARTAN
     Dosage: 160 MG QD
     Route: 048
  30. BENADRYL ALLERGY [Suspect]
     Active Substance: DIPHENHYDRAMINE HYDROCHLORIDE
     Dosage: 25 MG AT EVERY 4 TO 6 HOURS AS NEEDED Q4+6H
     Route: 048

REACTIONS (30)
  - Anaemia [Unknown]
  - Arthralgia [Recovered/Resolved]
  - Pain in extremity [Unknown]
  - Paraesthesia [Unknown]
  - Back pain [Unknown]
  - Frequent bowel movements [Unknown]
  - Nausea [Recovering/Resolving]
  - Vomiting [Recovered/Resolved]
  - Chills [Unknown]
  - Mesothelioma [Unknown]
  - Hyperhidrosis [Unknown]
  - Pyrexia [Unknown]
  - Abdominal discomfort [Unknown]
  - Burning sensation [Unknown]
  - Pubic pain [Unknown]
  - Faeces discoloured [Recovered/Resolved]
  - Abdominal distension [Recovered/Resolved]
  - Myalgia [Recovering/Resolving]
  - Decreased appetite [Unknown]
  - Weight decreased [Unknown]
  - Syncope [Recovered/Resolved]
  - Abdominal pain [Recovered/Resolved]
  - Metastases to peritoneum [Unknown]
  - Chalazion [Recovered/Resolved]
  - Hordeolum [Unknown]
  - Inflammatory bowel disease [Unknown]
  - Haematochezia [Unknown]
  - Cellulitis [Unknown]
  - Rectal haemorrhage [Unknown]
  - Skin lesion [Unknown]

NARRATIVE: CASE EVENT DATE: 20190801
